FAERS Safety Report 13473074 (Version 1)
Quarter: 2017Q2

REPORT INFORMATION
  Report Type: Spontaneous
  Country: BR (occurrence: BR)
  Receive Date: 20170424
  Receipt Date: 20170424
  Transmission Date: 20170830
  Serious: Yes (Other)
  Sender: FDA-Public Use
  Company Number: BR-BAYER-2017-076554

PATIENT
  Age: 66 Year
  Sex: Male

DRUGS (14)
  1. EZETIMIBE. [Suspect]
     Active Substance: EZETIMIBE
     Indication: HYPOLIPIDAEMIA
     Dosage: 10 MG, UNK
     Dates: start: 20151019
  2. EZETIMIBE. [Suspect]
     Active Substance: EZETIMIBE
     Indication: HYPOLIPIDAEMIA
     Dosage: 10 MG, UNK
     Dates: start: 201603
  3. CLOPIDOGREL [Suspect]
     Active Substance: CLOPIDOGREL BISULFATE
     Dosage: 75 MG, UNK
  4. ENALAPRIL MALEATE. [Suspect]
     Active Substance: ENALAPRIL MALEATE
     Dosage: 10 MG, UNK
  5. EZETIMIBE. [Suspect]
     Active Substance: EZETIMIBE
     Indication: HYPOLIPIDAEMIA
     Dosage: 10 MG, QD
     Dates: start: 201204
  6. EZETIMIBE. [Suspect]
     Active Substance: EZETIMIBE
     Indication: HYPOLIPIDAEMIA
     Dosage: 10 MG, UNK
     Dates: start: 201504
  7. ACETYLSALICYLIC ACID({=100 MG) [Suspect]
     Active Substance: ASPIRIN
     Dosage: 100 MG, UNK
  8. ATORVASTATIN [Suspect]
     Active Substance: ATORVASTATIN
     Indication: HYPERLIPIDAEMIA
     Dosage: 80 MG, UNK
     Dates: start: 20151019
  9. ATORVASTATIN [Suspect]
     Active Substance: ATORVASTATIN
     Indication: HYPERLIPIDAEMIA
     Dosage: 40 MG, UNK
     Dates: start: 201204
  10. ROSUVASTATIN. [Suspect]
     Active Substance: ROSUVASTATIN
     Indication: HYPOLIPIDAEMIA
     Dosage: 5 MG, QD
     Dates: start: 201607
  11. ROSUVASTATIN. [Suspect]
     Active Substance: ROSUVASTATIN
     Indication: HYPOLIPIDAEMIA
     Dosage: 10 MG, UNK
     Dates: start: 201608
  12. EZETIMIBE. [Suspect]
     Active Substance: EZETIMIBE
     Indication: HYPOLIPIDAEMIA
     Dosage: 10 MG, UNK
     Dates: start: 201607
  13. EZETIMIBE. [Suspect]
     Active Substance: EZETIMIBE
     Indication: HYPOLIPIDAEMIA
     Dosage: 10 MG, UNK
     Dates: start: 201608
  14. ATORVASTATIN [Suspect]
     Active Substance: ATORVASTATIN
     Indication: HYPERLIPIDAEMIA
     Dosage: 80 MG, UNK
     Dates: start: 201504

REACTIONS (1)
  - Hepatitis [Unknown]
